FAERS Safety Report 23717707 (Version 1)
Quarter: 2024Q2

REPORT INFORMATION
  Report Type: Spontaneous
  Country: US (occurrence: None)
  Receive Date: 20240405
  Receipt Date: 20240405
  Transmission Date: 20240715
  Serious: Yes (Death)
  Sender: FDA-Public Use
  Company Number: None

PATIENT
  Age: 69 Year
  Sex: Male
  Weight: 88.2 kg

DRUGS (12)
  1. DOBUTAMINE [Suspect]
     Active Substance: DOBUTAMINE HYDROCHLORIDE
     Indication: Cardiac failure
     Dosage: CONTINUOUS IV DRIP ?
     Route: 042
     Dates: start: 20240315, end: 20240315
  2. METFORMIN [Concomitant]
     Active Substance: METFORMIN HYDROCHLORIDE
  3. HYDROMORPHONE [Concomitant]
     Active Substance: HYDROMORPHONE
  4. BUMETANIDE [Concomitant]
     Active Substance: BUMETANIDE
  5. METLAZONE [Concomitant]
  6. METOPROLOL [Concomitant]
     Active Substance: METOPROLOL
  7. JANTOVEN [Concomitant]
     Active Substance: WARFARIN SODIUM
  8. GUANIFENESIN LIQUID [Concomitant]
  9. ASCORBIC ACID\BIOTIN\CALCIUM PANTOTHENATE\CYANOCOBALAMIN\FOLIC ACID\NI [Concomitant]
     Active Substance: ASCORBIC ACID\BIOTIN\CALCIUM PANTOTHENATE\CYANOCOBALAMIN\FOLIC ACID\NIACINAMIDE\PYRIDOXINE HYDROCHLO
  10. IRON/FERROUS SULFATE [Concomitant]
  11. CALCITRIOL [Concomitant]
  12. TART CHERRY EXTRACT [Concomitant]

REACTIONS (7)
  - Weight increased [None]
  - Fluid retention [None]
  - Hypotension [None]
  - Ejection fraction decreased [None]
  - Coronary artery disease [None]
  - Cardiac arrest [None]
  - Respiratory arrest [None]

NARRATIVE: CASE EVENT DATE: 20240315
